FAERS Safety Report 4383003-5 (Version None)
Quarter: 2004Q2

REPORT INFORMATION
  Report Type: 
  Country: None (occurrence: None)
  Receive Date: 20040602
  Receipt Date: 20040408
  Transmission Date: 20050107
  Serious: Yes (Hospitalization)
  Sender: FDA-Public Use
  Company Number: 2004AP000381

PATIENT
  Age: 57 Year
  Sex: Male

DRUGS (1)
  1. PAROXETINE HYDROCHLORIDE [Suspect]
     Dosage: 3600 MG; ONCE; ORAL
     Route: 048

REACTIONS (12)
  - CHILLS [None]
  - CLONIC CONVULSION [None]
  - FLUSHING [None]
  - HYPERHIDROSIS [None]
  - HYPERREFLEXIA [None]
  - HYPERTENSION [None]
  - HYPERVENTILATION [None]
  - MYDRIASIS [None]
  - OVERDOSE [None]
  - SEROTONIN SYNDROME [None]
  - TACHYCARDIA [None]
  - TREMOR [None]
